FAERS Safety Report 6496357-0 (Version None)
Quarter: 2009Q4

REPORT INFORMATION
  Report Type: 
  Country: None (occurrence: None)
  Receive Date: 20091214
  Receipt Date: 20090408
  Transmission Date: 20100525
  Serious: No
  Sender: FDA-Public Use
  Company Number: US-ABBOTT-09P-163-0567414-00

PATIENT
  Sex: Male
  Weight: 74.91 kg

DRUGS (3)
  1. VICODIN ES [Suspect]
     Indication: BACK PAIN
     Dosage: 7.5/750MG-ONE EVERY SIX HOURS
     Dates: start: 20090402
  2. XANAX [Concomitant]
     Indication: DRUG USE FOR UNKNOWN INDICATION
  3. BUSPIRONE HCL [Concomitant]
     Indication: DRUG USE FOR UNKNOWN INDICATION

REACTIONS (1)
  - DRUG INEFFECTIVE [None]
